FAERS Safety Report 6811490-9 (Version None)
Quarter: 2010Q2

REPORT INFORMATION
  Report Type: 
  Country: None (occurrence: None)
  Receive Date: 20100629
  Receipt Date: 20100629
  Transmission Date: 20101027
  Serious: Yes (Hospitalization)
  Sender: FDA-Public Use
  Company Number: None

PATIENT
  Age: 41 Year
  Sex: Male
  Weight: 61.2356 kg

DRUGS (1)
  1. BUDEPRION SR 150MG [Suspect]
     Indication: TOBACCO USER
     Dosage: 1 TABLET TWICE A DAY
     Dates: start: 20100528, end: 20100626

REACTIONS (7)
  - DYSPEPSIA [None]
  - JOINT SWELLING [None]
  - LIP SWELLING [None]
  - OROPHARYNGEAL PAIN [None]
  - PRURITUS [None]
  - SWELLING FACE [None]
  - URTICARIA [None]
